FAERS Safety Report 8348110-0 (Version None)
Quarter: 2012Q2

REPORT INFORMATION
  Report Type: 
  Country: None (occurrence: None)
  Receive Date: 20120509
  Receipt Date: 20120507
  Transmission Date: 20120825
  Serious: Yes (Death, Hospitalization)
  Sender: FDA-Public Use
  Company Number: PHHY2012IL032147

PATIENT
  Age: 60 Year
  Sex: Male

DRUGS (2)
  1. CERTICAN [Suspect]
     Indication: RENAL TRANSPLANT
     Dosage: 1MG IN THE MORNING AND 0.75MG IN THE EVENING.
     Route: 048
     Dates: end: 20120401
  2. HYDROCORTISONE [Concomitant]
     Indication: RENAL TRANSPLANT
     Dosage: UNK UKN, UNK

REACTIONS (5)
  - CHEST PAIN [None]
  - SEPSIS [None]
  - DYSPNOEA [None]
  - DISEASE PROGRESSION [None]
  - SEPTIC SHOCK [None]
